FAERS Safety Report 4290592-8 (Version None)
Quarter: 2004Q1

REPORT INFORMATION
  Report Type: 
  Country: None (occurrence: None)
  Receive Date: 20040204
  Receipt Date: 20040123
  Transmission Date: 20041129
  Serious: Yes (Death)
  Sender: FDA-Public Use
  Company Number: 233421

PATIENT
  Age: 86 Day
  Sex: Female
  Weight: 5.5 kg

DRUGS (12)
  1. NOVOSEVEN [Suspect]
     Indication: ACTIVATED PARTIAL THROMBOPLASTIN TIME PROLONGED
     Dosage: 100 UG/KG Q 2H (FOR 3 DOSES), INTRAVENOUS
     Route: 042
     Dates: start: 20031010, end: 20031010
  2. ZANTAC [Concomitant]
  3. SODIUM BICARBONATE IN PLASTIC CONTAINER [Concomitant]
  4. DEXTROSE INJECTION (GLUCOSE INJECTION) [Concomitant]
  5. CALCIUM CHLORIDE ^BIOTIKA^ (CALCIUM CHLORIDE DIHYDRATE) [Concomitant]
  6. KETAMINE HCL [Concomitant]
  7. EPINEPHRINE [Concomitant]
  8. NOREPINEPHRINE (NOREPINEPHRINE) [Concomitant]
  9. AMIODARONE HCL [Concomitant]
  10. ATACURIUM [Concomitant]
  11. DOPAMINE HCL [Concomitant]
  12. IMMUNOGLOBULINS (IMMUNOGLOBULINS) [Concomitant]

REACTIONS (5)
  - CIRCULATORY COLLAPSE [None]
  - HAEMATOCRIT DECREASED [None]
  - HAEMOGLOBIN DECREASED [None]
  - MULTI-ORGAN FAILURE [None]
  - PLATELET COUNT DECREASED [None]
